FAERS Safety Report 7481921-2 (Version None)
Quarter: 2011Q2

REPORT INFORMATION
  Report Type: 
  Country: None (occurrence: None)
  Receive Date: 20110509
  Receipt Date: 20110429
  Transmission Date: 20111010
  Serious: Yes (Hospitalization, Other)
  Sender: FDA-Public Use
  Company Number: ZYD-11-AE-013

PATIENT
  Age: 68 Year
  Sex: Female

DRUGS (9)
  1. ^OMENDI^ [Concomitant]
  2. METOPROLOL TARTRATE [Concomitant]
  3. FISH OIL [Concomitant]
  4. MEDICATION FOR CROHN'S DISEASE [Concomitant]
  5. ISOSORBIDE DINITRATE [Concomitant]
  6. CLONIDINE [Concomitant]
  7. SIMVASTATIN [Suspect]
     Indication: BLOOD CHOLESTEROL INCREASED
     Dosage: 80MG - DAILY - ORAL
     Route: 048
     Dates: end: 20110101
  8. DIOVAN [Concomitant]
  9. ASPIRIN [Concomitant]

REACTIONS (6)
  - MEMORY IMPAIRMENT [None]
  - MYALGIA [None]
  - MUSCLE SPASMS [None]
  - CHEST PAIN [None]
  - MUSCULAR WEAKNESS [None]
  - EYE PAIN [None]
